FAERS Safety Report 25663356 (Version 2)
Quarter: 2025Q3

REPORT INFORMATION
  Report Type: Spontaneous
  Country: CA (occurrence: CA)
  Receive Date: 20250811
  Receipt Date: 20250813
  Transmission Date: 20251020
  Serious: Yes (Death, Life-Threatening, Hospitalization, Disabling, Congenital Anomaly, Other)
  Sender: TEVA
  Company Number: CA-TEVA-VS-3360949

PATIENT
  Age: 43 Year
  Sex: Female

DRUGS (290)
  1. ACETAMINOPHEN [Suspect]
     Active Substance: ACETAMINOPHEN
     Indication: Product used for unknown indication
     Route: 065
  2. LEVOMILNACIPRAN [Suspect]
     Active Substance: LEVOMILNACIPRAN
     Indication: Product used for unknown indication
     Route: 065
  3. BERINERT [Suspect]
     Active Substance: HUMAN C1-ESTERASE INHIBITOR
     Indication: Product used for unknown indication
     Route: 065
  4. CALCIUM CARBONATE [Suspect]
     Active Substance: CALCIUM CARBONATE
     Indication: Migraine
     Route: 065
  5. CALCIUM CARBONATE [Suspect]
     Active Substance: CALCIUM CARBONATE
     Indication: Migraine
     Route: 065
  6. CALCIUM CARBONATE [Suspect]
     Active Substance: CALCIUM CARBONATE
     Indication: Migraine
     Route: 065
  7. CALCIUM CARBONATE [Suspect]
     Active Substance: CALCIUM CARBONATE
     Indication: Migraine
     Route: 065
  8. HYRIMOZ [Suspect]
     Active Substance: ADALIMUMAB-ADAZ
     Indication: Product used for unknown indication
     Route: 065
  9. ATOMOXETINE HYDROCHLORIDE [Suspect]
     Active Substance: ATOMOXETINE HYDROCHLORIDE
     Indication: Migraine
     Route: 005
  10. ATOMOXETINE HYDROCHLORIDE [Suspect]
     Active Substance: ATOMOXETINE HYDROCHLORIDE
     Indication: Migraine
     Route: 005
  11. AIMOVIG [Suspect]
     Active Substance: ERENUMAB-AOOE
     Indication: Migraine
     Route: 065
  12. AIMOVIG [Suspect]
     Active Substance: ERENUMAB-AOOE
     Indication: Migraine
     Route: 065
  13. VITAMIN A [Suspect]
     Active Substance: VITAMIN A
     Indication: Product used for unknown indication
     Route: 065
  14. NAPROXEN [Suspect]
     Active Substance: NAPROXEN
     Indication: Product used for unknown indication
     Route: 065
  15. NAPROXEN [Suspect]
     Active Substance: NAPROXEN
     Indication: Product used for unknown indication
     Route: 065
  16. NAPROXEN [Suspect]
     Active Substance: NAPROXEN
     Indication: Product used for unknown indication
     Route: 065
  17. NAPROXEN [Suspect]
     Active Substance: NAPROXEN
     Indication: Product used for unknown indication
     Route: 065
  18. NAPROXEN [Suspect]
     Active Substance: NAPROXEN
     Indication: Product used for unknown indication
     Route: 065
  19. NAPROXEN [Suspect]
     Active Substance: NAPROXEN
     Indication: Product used for unknown indication
     Route: 065
  20. NAPROXEN [Suspect]
     Active Substance: NAPROXEN
     Indication: Product used for unknown indication
     Route: 065
  21. NAPROXEN [Suspect]
     Active Substance: NAPROXEN
     Indication: Product used for unknown indication
     Dosage: DOSE FORM: NOT SPECIFIED
     Route: 065
  22. DESOXIMETASONE [Suspect]
     Active Substance: DESOXIMETASONE
     Indication: Product used for unknown indication
     Route: 065
  23. DESOXIMETASONE [Suspect]
     Active Substance: DESOXIMETASONE
     Indication: Product used for unknown indication
     Route: 065
  24. DESOXIMETASONE [Suspect]
     Active Substance: DESOXIMETASONE
     Indication: Product used for unknown indication
     Route: 065
  25. DESOXIMETASONE [Suspect]
     Active Substance: DESOXIMETASONE
     Indication: Product used for unknown indication
     Route: 065
  26. DESOXIMETASONE [Suspect]
     Active Substance: DESOXIMETASONE
     Indication: Product used for unknown indication
     Route: 065
  27. DESOXIMETASONE [Suspect]
     Active Substance: DESOXIMETASONE
     Indication: Product used for unknown indication
     Route: 065
  28. DESOXIMETASONE [Suspect]
     Active Substance: DESOXIMETASONE
     Indication: Product used for unknown indication
     Route: 065
  29. DESOXIMETASONE [Suspect]
     Active Substance: DESOXIMETASONE
     Indication: Product used for unknown indication
     Route: 065
  30. DESOXIMETASONE [Suspect]
     Active Substance: DESOXIMETASONE
     Indication: Product used for unknown indication
     Route: 065
  31. DESOXIMETASONE [Suspect]
     Active Substance: DESOXIMETASONE
     Indication: Product used for unknown indication
     Route: 065
  32. DESOXIMETASONE [Suspect]
     Active Substance: DESOXIMETASONE
     Indication: Product used for unknown indication
     Route: 065
  33. DESOXIMETASONE [Suspect]
     Active Substance: DESOXIMETASONE
     Indication: Product used for unknown indication
     Route: 065
  34. DESOXIMETASONE [Suspect]
     Active Substance: DESOXIMETASONE
     Indication: Product used for unknown indication
     Route: 065
  35. DESOXIMETASONE [Suspect]
     Active Substance: DESOXIMETASONE
     Indication: Product used for unknown indication
     Route: 065
  36. DESOXIMETASONE [Suspect]
     Active Substance: DESOXIMETASONE
     Indication: Product used for unknown indication
     Route: 065
  37. DESOXIMETASONE [Suspect]
     Active Substance: DESOXIMETASONE
     Indication: Product used for unknown indication
     Route: 065
  38. DESOXIMETASONE [Suspect]
     Active Substance: DESOXIMETASONE
     Indication: Product used for unknown indication
     Route: 065
  39. DESOXIMETASONE [Suspect]
     Active Substance: DESOXIMETASONE
     Indication: Product used for unknown indication
     Route: 065
  40. DESOXIMETASONE [Suspect]
     Active Substance: DESOXIMETASONE
     Indication: Product used for unknown indication
     Route: 065
  41. DESOXIMETASONE [Suspect]
     Active Substance: DESOXIMETASONE
     Indication: Product used for unknown indication
     Route: 065
  42. DESOXIMETASONE [Suspect]
     Active Substance: DESOXIMETASONE
     Indication: Product used for unknown indication
     Route: 065
  43. RITUXIMAB [Suspect]
     Active Substance: RITUXIMAB
     Indication: Rheumatoid arthritis
     Route: 043
  44. RITUXIMAB [Suspect]
     Active Substance: RITUXIMAB
     Indication: Rheumatoid arthritis
     Route: 058
  45. BETAMETHASONE [Suspect]
     Active Substance: BETAMETHASONE
     Indication: Product used for unknown indication
     Route: 065
  46. BETAMETHASONE [Suspect]
     Active Substance: BETAMETHASONE
     Indication: Product used for unknown indication
     Route: 065
  47. BETAMETHASONE [Suspect]
     Active Substance: BETAMETHASONE
     Indication: Product used for unknown indication
     Route: 065
  48. BETAMETHASONE [Suspect]
     Active Substance: BETAMETHASONE
     Indication: Product used for unknown indication
     Route: 065
  49. BETAMETHASONE [Suspect]
     Active Substance: BETAMETHASONE
     Indication: Product used for unknown indication
     Route: 065
  50. BETAMETHASONE [Suspect]
     Active Substance: BETAMETHASONE
     Indication: Product used for unknown indication
     Dosage: BETAMETHASONE VALERATE
     Route: 065
  51. BETAMETHASONE [Suspect]
     Active Substance: BETAMETHASONE
     Indication: Product used for unknown indication
     Route: 065
  52. ORENCIA [Suspect]
     Active Substance: ABATACEPT
     Indication: Product used for unknown indication
     Route: 042
  53. ERENUMAB [Suspect]
     Active Substance: ERENUMAB
     Indication: Migraine
     Route: 065
  54. ERENUMAB [Suspect]
     Active Substance: ERENUMAB
     Indication: Migraine
     Route: 065
  55. ERENUMAB [Suspect]
     Active Substance: ERENUMAB
     Indication: Migraine
     Route: 065
  56. ERENUMAB [Suspect]
     Active Substance: ERENUMAB
     Indication: Migraine
     Route: 065
  57. ERENUMAB [Suspect]
     Active Substance: ERENUMAB
     Indication: Migraine
     Route: 065
  58. ERENUMAB [Suspect]
     Active Substance: ERENUMAB
     Indication: Migraine
     Route: 065
  59. CALCIUM PANTOTHENATE [Suspect]
     Active Substance: CALCIUM PANTOTHENATE
     Indication: Product used for unknown indication
     Route: 065
  60. ERGOCALCIFEROL [Suspect]
     Active Substance: ERGOCALCIFEROL
     Indication: Product used for unknown indication
     Route: 065
  61. ERGOCALCIFEROL [Suspect]
     Active Substance: ERGOCALCIFEROL
     Indication: Product used for unknown indication
     Route: 065
  62. CETIRIZINE HYDROCHLORIDE\PSEUDOEPHEDRINE HYDROCHLORIDE [Suspect]
     Active Substance: CETIRIZINE HYDROCHLORIDE\PSEUDOEPHEDRINE HYDROCHLORIDE
     Indication: Product used for unknown indication
     Route: 048
  63. CETIRIZINE HYDROCHLORIDE\PSEUDOEPHEDRINE HYDROCHLORIDE [Suspect]
     Active Substance: CETIRIZINE HYDROCHLORIDE\PSEUDOEPHEDRINE HYDROCHLORIDE
     Indication: Product used for unknown indication
     Route: 065
  64. PHOSPHORUS [Suspect]
     Active Substance: PHOSPHORUS
     Indication: Product used for unknown indication
     Route: 065
  65. OTEZLA [Suspect]
     Active Substance: APREMILAST
     Indication: Product used for unknown indication
     Route: 065
  66. ATOMOXETINE HYDROCHLORIDE [Suspect]
     Active Substance: ATOMOXETINE HYDROCHLORIDE
     Indication: Migraine
     Route: 065
  67. ATOMOXETINE HYDROCHLORIDE [Suspect]
     Active Substance: ATOMOXETINE HYDROCHLORIDE
     Indication: Migraine
     Route: 065
  68. ATOMOXETINE HYDROCHLORIDE [Suspect]
     Active Substance: ATOMOXETINE HYDROCHLORIDE
     Indication: Migraine
     Route: 065
  69. ATOMOXETINE HYDROCHLORIDE [Suspect]
     Active Substance: ATOMOXETINE HYDROCHLORIDE
     Indication: Migraine
     Route: 065
  70. ATOMOXETINE HYDROCHLORIDE [Suspect]
     Active Substance: ATOMOXETINE HYDROCHLORIDE
     Indication: Migraine
     Route: 065
  71. XELJANZ [Suspect]
     Active Substance: TOFACITINIB CITRATE
     Indication: Rheumatoid arthritis
     Dosage: DOSE FORM: NOT SPECIFIED
     Route: 065
  72. RIBOFLAVIN [Suspect]
     Active Substance: RIBOFLAVIN
     Indication: Product used for unknown indication
     Route: 065
  73. PYRIDOXINE HYDROCHLORIDE [Suspect]
     Active Substance: PYRIDOXINE HYDROCHLORIDE
     Indication: Product used for unknown indication
     Route: 065
  74. FINACEA [Suspect]
     Active Substance: AZELAIC ACID
     Indication: Product used for unknown indication
     Route: 065
  75. FINACEA [Suspect]
     Active Substance: AZELAIC ACID
     Indication: Product used for unknown indication
     Route: 065
  76. FINACEA [Suspect]
     Active Substance: AZELAIC ACID
     Indication: Product used for unknown indication
     Route: 048
  77. FLUTICASONE FUROATE [Suspect]
     Active Substance: FLUTICASONE FUROATE
     Indication: Product used for unknown indication
     Route: 065
  78. FLUTICASONE FUROATE [Suspect]
     Active Substance: FLUTICASONE FUROATE
     Indication: Product used for unknown indication
     Route: 065
  79. FLUTICASONE FUROATE [Suspect]
     Active Substance: FLUTICASONE FUROATE
     Indication: Product used for unknown indication
     Dosage: DOSE FORM: SPRAY, METERED DOSE
     Route: 065
  80. DOMPERIDONE MALEATE [Suspect]
     Active Substance: DOMPERIDONE MALEATE
     Indication: Product used for unknown indication
     Route: 065
  81. DOMPERIDONE MALEATE [Suspect]
     Active Substance: DOMPERIDONE MALEATE
     Indication: Product used for unknown indication
     Route: 065
  82. DOMPERIDONE MALEATE [Suspect]
     Active Substance: DOMPERIDONE MALEATE
     Indication: Product used for unknown indication
     Route: 065
  83. DOMPERIDONE MALEATE [Suspect]
     Active Substance: DOMPERIDONE MALEATE
     Indication: Product used for unknown indication
     Route: 065
  84. DOMPERIDONE MALEATE [Suspect]
     Active Substance: DOMPERIDONE MALEATE
     Indication: Product used for unknown indication
     Route: 065
  85. DOMPERIDONE MALEATE [Suspect]
     Active Substance: DOMPERIDONE MALEATE
     Indication: Product used for unknown indication
     Route: 065
  86. DOMPERIDONE MALEATE [Suspect]
     Active Substance: DOMPERIDONE MALEATE
     Indication: Product used for unknown indication
     Route: 065
  87. DOMPERIDONE MALEATE [Suspect]
     Active Substance: DOMPERIDONE MALEATE
     Indication: Product used for unknown indication
     Route: 065
  88. DOMPERIDONE MALEATE [Suspect]
     Active Substance: DOMPERIDONE MALEATE
     Indication: Product used for unknown indication
     Route: 065
  89. DOMPERIDONE MALEATE [Suspect]
     Active Substance: DOMPERIDONE MALEATE
     Indication: Product used for unknown indication
     Route: 065
  90. VITAMINS NOS [Suspect]
     Active Substance: VITAMINS
     Indication: Product used for unknown indication
     Route: 065
  91. VITAMIN D [Suspect]
     Active Substance: VITAMIN D NOS
     Indication: Product used for unknown indication
     Route: 065
  92. TOPICORT [Suspect]
     Active Substance: DESOXIMETASONE
     Indication: Product used for unknown indication
     Route: 065
  93. TOPICORT [Suspect]
     Active Substance: DESOXIMETASONE
     Indication: Product used for unknown indication
     Dosage: DOSE FORM: NOT SPECIFIED
     Route: 065
  94. TOPICORT [Suspect]
     Active Substance: DESOXIMETASONE
     Indication: Product used for unknown indication
     Route: 065
  95. TOPICORT [Suspect]
     Active Substance: DESOXIMETASONE
     Indication: Product used for unknown indication
     Route: 065
  96. TOPICORT [Suspect]
     Active Substance: DESOXIMETASONE
     Indication: Product used for unknown indication
     Route: 065
  97. TOPICORT [Suspect]
     Active Substance: DESOXIMETASONE
     Indication: Product used for unknown indication
     Route: 065
  98. TOPICORT [Suspect]
     Active Substance: DESOXIMETASONE
     Indication: Product used for unknown indication
     Route: 065
  99. TOPICORT [Suspect]
     Active Substance: DESOXIMETASONE
     Indication: Product used for unknown indication
     Route: 065
  100. TOPICORT [Suspect]
     Active Substance: DESOXIMETASONE
     Indication: Product used for unknown indication
     Route: 065
  101. TRICHOLINE CITRATE [Suspect]
     Active Substance: TRICHOLINE CITRATE
     Indication: Product used for unknown indication
     Route: 065
  102. CETIRIZINE [Suspect]
     Active Substance: CETIRIZINE HYDROCHLORIDE
     Indication: Product used for unknown indication
     Route: 048
  103. CETIRIZINE [Suspect]
     Active Substance: CETIRIZINE HYDROCHLORIDE
     Indication: Product used for unknown indication
     Route: 048
  104. CETIRIZINE [Suspect]
     Active Substance: CETIRIZINE HYDROCHLORIDE
     Indication: Product used for unknown indication
     Route: 065
  105. CETIRIZINE [Suspect]
     Active Substance: CETIRIZINE HYDROCHLORIDE
     Indication: Product used for unknown indication
     Route: 065
  106. CETIRIZINE [Suspect]
     Active Substance: CETIRIZINE HYDROCHLORIDE
     Indication: Product used for unknown indication
     Route: 065
  107. CETIRIZINE [Suspect]
     Active Substance: CETIRIZINE HYDROCHLORIDE
     Indication: Product used for unknown indication
     Route: 065
  108. CETIRIZINE [Suspect]
     Active Substance: CETIRIZINE HYDROCHLORIDE
     Indication: Product used for unknown indication
     Route: 048
  109. CETIRIZINE [Suspect]
     Active Substance: CETIRIZINE HYDROCHLORIDE
     Indication: Product used for unknown indication
     Route: 048
  110. CETIRIZINE [Suspect]
     Active Substance: CETIRIZINE HYDROCHLORIDE
     Indication: Product used for unknown indication
     Route: 048
  111. CETIRIZINE [Suspect]
     Active Substance: CETIRIZINE HYDROCHLORIDE
     Indication: Product used for unknown indication
     Route: 065
  112. CETIRIZINE [Suspect]
     Active Substance: CETIRIZINE HYDROCHLORIDE
     Indication: Product used for unknown indication
     Route: 065
  113. CETIRIZINE [Suspect]
     Active Substance: CETIRIZINE HYDROCHLORIDE
     Indication: Product used for unknown indication
     Route: 048
  114. CELECOXIB [Suspect]
     Active Substance: CELECOXIB
     Indication: Product used for unknown indication
     Route: 065
  115. CELECOXIB [Suspect]
     Active Substance: CELECOXIB
     Indication: Product used for unknown indication
     Route: 065
  116. BUPRENORPHINE HYDROCHLORIDE [Suspect]
     Active Substance: BUPRENORPHINE HYDROCHLORIDE
     Indication: Product used for unknown indication
     Route: 065
  117. STRATTERA [Suspect]
     Active Substance: ATOMOXETINE HYDROCHLORIDE
     Indication: Migraine
     Route: 065
  118. STRATTERA [Suspect]
     Active Substance: ATOMOXETINE HYDROCHLORIDE
     Indication: Migraine
     Route: 065
  119. STRATTERA [Suspect]
     Active Substance: ATOMOXETINE HYDROCHLORIDE
     Indication: Migraine
     Route: 065
  120. STRATTERA [Suspect]
     Active Substance: ATOMOXETINE HYDROCHLORIDE
     Indication: Migraine
     Route: 065
  121. COSENTYX [Suspect]
     Active Substance: SECUKINUMAB
     Indication: Product used for unknown indication
     Route: 065
  122. NAPROXEN [Suspect]
     Active Substance: NAPROXEN
     Indication: Product used for unknown indication
     Route: 005
  123. NAPROXEN [Suspect]
     Active Substance: NAPROXEN
     Indication: Product used for unknown indication
     Route: 005
  124. NAPROXEN [Suspect]
     Active Substance: NAPROXEN
     Indication: Product used for unknown indication
     Route: 005
  125. ACETAMINOPHEN AND CODEINE [Suspect]
     Active Substance: ACETAMINOPHEN\CODEINE PHOSPHATE
     Indication: Product used for unknown indication
     Route: 065
  126. BOTULINUM TOXIN TYPE A [Suspect]
     Active Substance: BOTULINUM TOXIN TYPE A
     Indication: Migraine
     Route: 030
  127. BOTULINUM TOXIN TYPE A [Suspect]
     Active Substance: BOTULINUM TOXIN TYPE A
     Indication: Migraine
     Route: 065
  128. BOTULINUM TOXIN TYPE A [Suspect]
     Active Substance: BOTULINUM TOXIN TYPE A
     Indication: Migraine
     Route: 065
  129. CETIRIZINE HYDROCHLORIDE [Suspect]
     Active Substance: CETIRIZINE HYDROCHLORIDE
     Indication: Product used for unknown indication
     Route: 065
  130. LAMOTRIGINE [Suspect]
     Active Substance: LAMOTRIGINE
     Indication: Product used for unknown indication
     Route: 048
  131. LAMOTRIGINE [Suspect]
     Active Substance: LAMOTRIGINE
     Indication: Product used for unknown indication
     Route: 065
  132. LAMOTRIGINE [Suspect]
     Active Substance: LAMOTRIGINE
     Indication: Product used for unknown indication
     Route: 048
  133. LAMOTRIGINE [Suspect]
     Active Substance: LAMOTRIGINE
     Indication: Product used for unknown indication
     Route: 065
  134. INFLIXIMAB [Suspect]
     Active Substance: INFLIXIMAB
     Indication: Product used for unknown indication
     Route: 065
  135. CYCLOBENZAPRINE [Suspect]
     Active Substance: CYCLOBENZAPRINE
     Indication: Product used for unknown indication
     Route: 065
  136. CYCLOBENZAPRINE [Suspect]
     Active Substance: CYCLOBENZAPRINE
     Indication: Product used for unknown indication
     Route: 065
  137. CYCLOBENZAPRINE [Suspect]
     Active Substance: CYCLOBENZAPRINE
     Indication: Product used for unknown indication
     Dosage: CYCLOBENZAPRINE HYDROCHLORIDE
     Route: 065
  138. CYCLOBENZAPRINE [Suspect]
     Active Substance: CYCLOBENZAPRINE
     Indication: Product used for unknown indication
     Route: 065
  139. TOPIRAMATE [Suspect]
     Active Substance: TOPIRAMATE
     Indication: Migraine
     Route: 065
  140. TOPIRAMATE [Suspect]
     Active Substance: TOPIRAMATE
     Indication: Migraine
     Route: 065
  141. TOPIRAMATE [Suspect]
     Active Substance: TOPIRAMATE
     Indication: Migraine
     Route: 065
  142. TOPIRAMATE [Suspect]
     Active Substance: TOPIRAMATE
     Indication: Migraine
     Route: 065
  143. TOPIRAMATE [Suspect]
     Active Substance: TOPIRAMATE
     Indication: Migraine
     Route: 065
  144. TOPIRAMATE [Suspect]
     Active Substance: TOPIRAMATE
     Indication: Migraine
     Route: 065
  145. TOPIRAMATE [Suspect]
     Active Substance: TOPIRAMATE
     Indication: Migraine
     Route: 065
  146. LAMICTAL [Suspect]
     Active Substance: LAMOTRIGINE
     Indication: Product used for unknown indication
     Route: 048
  147. LAMICTAL [Suspect]
     Active Substance: LAMOTRIGINE
     Indication: Product used for unknown indication
     Route: 048
  148. LAMICTAL [Suspect]
     Active Substance: LAMOTRIGINE
     Indication: Product used for unknown indication
     Route: 048
  149. LAMICTAL [Suspect]
     Active Substance: LAMOTRIGINE
     Indication: Product used for unknown indication
     Route: 048
  150. LAMICTAL [Suspect]
     Active Substance: LAMOTRIGINE
     Indication: Product used for unknown indication
     Route: 048
  151. LAMICTAL [Suspect]
     Active Substance: LAMOTRIGINE
     Indication: Product used for unknown indication
     Route: 048
  152. LAMICTAL [Suspect]
     Active Substance: LAMOTRIGINE
     Indication: Product used for unknown indication
     Route: 065
  153. LAMICTAL [Suspect]
     Active Substance: LAMOTRIGINE
     Indication: Product used for unknown indication
     Route: 048
  154. LAMICTAL [Suspect]
     Active Substance: LAMOTRIGINE
     Indication: Product used for unknown indication
     Route: 048
  155. LAMICTAL [Suspect]
     Active Substance: LAMOTRIGINE
     Indication: Product used for unknown indication
     Route: 048
  156. LAMICTAL [Suspect]
     Active Substance: LAMOTRIGINE
     Indication: Product used for unknown indication
     Route: 048
  157. ERGOCALCIFEROL [Suspect]
     Active Substance: ERGOCALCIFEROL
     Indication: Product used for unknown indication
     Route: 065
  158. ACTEMRA [Suspect]
     Active Substance: TOCILIZUMAB
     Indication: Rheumatoid arthritis
     Route: 065
  159. ACTEMRA [Suspect]
     Active Substance: TOCILIZUMAB
     Indication: Rheumatoid arthritis
     Route: 065
  160. ACTEMRA [Suspect]
     Active Substance: TOCILIZUMAB
     Indication: Rheumatoid arthritis
     Route: 065
  161. ACTEMRA [Suspect]
     Active Substance: TOCILIZUMAB
     Indication: Rheumatoid arthritis
     Route: 065
  162. PAROXETINE [Suspect]
     Active Substance: PAROXETINE
     Indication: Product used for unknown indication
     Route: 065
  163. PAROXETINE [Suspect]
     Active Substance: PAROXETINE
     Indication: Product used for unknown indication
     Route: 065
  164. PAROXETINE [Suspect]
     Active Substance: PAROXETINE
     Indication: Product used for unknown indication
     Route: 065
  165. GOLD SODIUM THIOMALATE [Suspect]
     Active Substance: GOLD SODIUM THIOMALATE
     Indication: Product used for unknown indication
     Route: 065
  166. TOPIRAMATE [Suspect]
     Active Substance: TOPIRAMATE
     Indication: Product used for unknown indication
     Route: 065
  167. TOPIRAMATE [Suspect]
     Active Substance: TOPIRAMATE
     Indication: Product used for unknown indication
     Route: 065
  168. TOPIRAMATE [Suspect]
     Active Substance: TOPIRAMATE
     Indication: Product used for unknown indication
     Route: 065
  169. NICOTINAMIDE [Suspect]
     Active Substance: NIACINAMIDE
     Indication: Product used for unknown indication
     Route: 065
  170. AZELAIC ACID [Suspect]
     Active Substance: AZELAIC ACID
     Indication: Product used for unknown indication
     Route: 005
  171. AZELAIC ACID [Suspect]
     Active Substance: AZELAIC ACID
     Indication: Product used for unknown indication
     Route: 065
  172. FOSAMAX [Suspect]
     Active Substance: ALENDRONATE SODIUM
     Indication: Product used for unknown indication
     Route: 065
  173. LEFLUNOMIDE [Suspect]
     Active Substance: LEFLUNOMIDE
     Indication: Product used for unknown indication
     Route: 065
  174. TRETINOIN [Suspect]
     Active Substance: TRETINOIN
     Indication: Product used for unknown indication
     Route: 065
  175. TRETINOIN [Suspect]
     Active Substance: TRETINOIN
     Indication: Product used for unknown indication
     Route: 065
  176. BUTRANS [Suspect]
     Active Substance: BUPRENORPHINE
     Indication: Product used for unknown indication
     Route: 065
  177. FLUTICASONE PROPIONATE [Suspect]
     Active Substance: FLUTICASONE PROPIONATE
     Indication: Product used for unknown indication
     Dosage: FLUTICASONE FUROATE
     Route: 065
  178. FLUTICASONE PROPIONATE [Suspect]
     Active Substance: FLUTICASONE PROPIONATE
     Indication: Product used for unknown indication
     Route: 065
  179. METHYLPREDNISOLONE [Suspect]
     Active Substance: METHYLPREDNISOLONE
     Indication: Product used for unknown indication
     Route: 065
  180. CHOLECALCIFEROL [Suspect]
     Active Substance: CHOLECALCIFEROL
     Indication: Product used for unknown indication
     Route: 065
  181. FETZIMA [Suspect]
     Active Substance: LEVOMILNACIPRAN HYDROCHLORIDE
     Indication: Product used for unknown indication
     Route: 065
  182. FETZIMA [Suspect]
     Active Substance: LEVOMILNACIPRAN HYDROCHLORIDE
     Indication: Product used for unknown indication
     Route: 065
  183. CORTISONE ACETATE [Suspect]
     Active Substance: CORTISONE ACETATE
     Indication: Product used for unknown indication
     Route: 065
  184. PSEUDOEPHEDRINE [Suspect]
     Active Substance: PSEUDOEPHEDRINE
     Indication: Product used for unknown indication
     Route: 065
  185. PSEUDOEPHEDRINE [Suspect]
     Active Substance: PSEUDOEPHEDRINE
     Indication: Product used for unknown indication
     Route: 065
  186. PSEUDOEPHEDRINE [Suspect]
     Active Substance: PSEUDOEPHEDRINE
     Indication: Product used for unknown indication
     Route: 065
  187. PSEUDOEPHEDRINE [Suspect]
     Active Substance: PSEUDOEPHEDRINE
     Indication: Product used for unknown indication
     Route: 065
  188. PSEUDOEPHEDRINE [Suspect]
     Active Substance: PSEUDOEPHEDRINE
     Indication: Product used for unknown indication
     Route: 065
  189. PSEUDOEPHEDRINE [Suspect]
     Active Substance: PSEUDOEPHEDRINE
     Indication: Product used for unknown indication
     Dosage: PSEUDOEPHEDRINE HYDROBROMIDE
     Route: 065
  190. PSEUDOEPHEDRINE [Suspect]
     Active Substance: PSEUDOEPHEDRINE
     Indication: Product used for unknown indication
     Route: 065
  191. HYDROMORPHONE [Suspect]
     Active Substance: HYDROMORPHONE
     Indication: Product used for unknown indication
     Route: 065
  192. HYDROMORPHONE [Suspect]
     Active Substance: HYDROMORPHONE
     Indication: Product used for unknown indication
     Route: 065
  193. HYDROMORPHONE [Suspect]
     Active Substance: HYDROMORPHONE
     Indication: Product used for unknown indication
     Route: 065
  194. HYDROMORPHONE [Suspect]
     Active Substance: HYDROMORPHONE
     Indication: Product used for unknown indication
     Route: 065
  195. HYDROMORPHONE [Suspect]
     Active Substance: HYDROMORPHONE
     Indication: Product used for unknown indication
     Route: 065
  196. HYDROMORPHONE [Suspect]
     Active Substance: HYDROMORPHONE
     Indication: Product used for unknown indication
     Route: 065
  197. HYDROMORPHONE [Suspect]
     Active Substance: HYDROMORPHONE
     Indication: Product used for unknown indication
     Dosage: DOSE FORM: NOT SPECIFIED
     Route: 065
  198. BOTOX [Suspect]
     Active Substance: ONABOTULINUMTOXINA
     Indication: Migraine
     Route: 030
  199. HYDROCORTISONE ACETATE [Suspect]
     Active Substance: HYDROCORTISONE ACETATE
     Indication: Product used for unknown indication
     Route: 065
  200. HYDROCORTISONE ACETATE [Suspect]
     Active Substance: HYDROCORTISONE ACETATE
     Indication: Product used for unknown indication
     Route: 065
  201. HYDROCORTISONE ACETATE [Suspect]
     Active Substance: HYDROCORTISONE ACETATE
     Indication: Product used for unknown indication
     Route: 065
  202. HYDROCORTISONE ACETATE [Suspect]
     Active Substance: HYDROCORTISONE ACETATE
     Indication: Product used for unknown indication
     Route: 065
  203. HYDROCORTISONE ACETATE [Suspect]
     Active Substance: HYDROCORTISONE ACETATE
     Indication: Product used for unknown indication
     Route: 065
  204. HYDROCORTISONE ACETATE [Suspect]
     Active Substance: HYDROCORTISONE ACETATE
     Indication: Product used for unknown indication
     Route: 065
  205. HYDROCORTISONE ACETATE [Suspect]
     Active Substance: HYDROCORTISONE ACETATE
     Indication: Product used for unknown indication
     Route: 065
  206. HYDROCORTISONE ACETATE [Suspect]
     Active Substance: HYDROCORTISONE ACETATE
     Indication: Product used for unknown indication
     Route: 065
  207. PANTOPRAZOLE SODIUM [Suspect]
     Active Substance: PANTOPRAZOLE SODIUM
     Indication: Product used for unknown indication
     Route: 065
  208. PANTOPRAZOLE SODIUM [Suspect]
     Active Substance: PANTOPRAZOLE SODIUM
     Indication: Product used for unknown indication
     Route: 065
  209. PANTOPRAZOLE SODIUM [Suspect]
     Active Substance: PANTOPRAZOLE SODIUM
     Indication: Product used for unknown indication
     Route: 065
  210. PANTOPRAZOLE SODIUM [Suspect]
     Active Substance: PANTOPRAZOLE SODIUM
     Indication: Product used for unknown indication
     Route: 048
  211. PANTOPRAZOLE SODIUM [Suspect]
     Active Substance: PANTOPRAZOLE SODIUM
     Indication: Product used for unknown indication
     Route: 065
  212. PANTOPRAZOLE SODIUM [Suspect]
     Active Substance: PANTOPRAZOLE SODIUM
     Indication: Product used for unknown indication
     Route: 065
  213. PANTOPRAZOLE SODIUM [Suspect]
     Active Substance: PANTOPRAZOLE SODIUM
     Indication: Product used for unknown indication
     Route: 065
  214. PANTOPRAZOLE SODIUM [Suspect]
     Active Substance: PANTOPRAZOLE SODIUM
     Indication: Product used for unknown indication
     Route: 048
  215. PANTOPRAZOLE SODIUM [Suspect]
     Active Substance: PANTOPRAZOLE SODIUM
     Indication: Product used for unknown indication
     Route: 065
  216. PANTOPRAZOLE SODIUM [Suspect]
     Active Substance: PANTOPRAZOLE SODIUM
     Indication: Product used for unknown indication
     Route: 065
  217. PANTOPRAZOLE SODIUM [Suspect]
     Active Substance: PANTOPRAZOLE SODIUM
     Indication: Product used for unknown indication
     Route: 048
  218. PANTOPRAZOLE SODIUM [Suspect]
     Active Substance: PANTOPRAZOLE SODIUM
     Indication: Product used for unknown indication
     Route: 065
  219. PANTOPRAZOLE SODIUM [Suspect]
     Active Substance: PANTOPRAZOLE SODIUM
     Indication: Product used for unknown indication
     Route: 065
  220. PANTOPRAZOLE SODIUM [Suspect]
     Active Substance: PANTOPRAZOLE SODIUM
     Indication: Product used for unknown indication
     Route: 065
  221. PANTOPRAZOLE SODIUM [Suspect]
     Active Substance: PANTOPRAZOLE SODIUM
     Indication: Product used for unknown indication
     Route: 065
  222. PANTOPRAZOLE SODIUM [Suspect]
     Active Substance: PANTOPRAZOLE SODIUM
     Indication: Product used for unknown indication
     Route: 065
  223. PANTOPRAZOLE SODIUM [Suspect]
     Active Substance: PANTOPRAZOLE SODIUM
     Indication: Product used for unknown indication
     Route: 065
  224. PANTOPRAZOLE SODIUM [Suspect]
     Active Substance: PANTOPRAZOLE SODIUM
     Indication: Product used for unknown indication
     Route: 065
  225. PANTOPRAZOLE SODIUM [Suspect]
     Active Substance: PANTOPRAZOLE SODIUM
     Indication: Product used for unknown indication
     Route: 065
  226. PANTOPRAZOLE SODIUM [Suspect]
     Active Substance: PANTOPRAZOLE SODIUM
     Indication: Product used for unknown indication
     Route: 048
  227. PANTOPRAZOLE SODIUM [Suspect]
     Active Substance: PANTOPRAZOLE SODIUM
     Indication: Product used for unknown indication
     Route: 065
  228. PANTOPRAZOLE SODIUM [Suspect]
     Active Substance: PANTOPRAZOLE SODIUM
     Indication: Product used for unknown indication
     Route: 065
  229. PANTOPRAZOLE SODIUM [Suspect]
     Active Substance: PANTOPRAZOLE SODIUM
     Indication: Product used for unknown indication
     Route: 065
  230. PANTOPRAZOLE SODIUM [Suspect]
     Active Substance: PANTOPRAZOLE SODIUM
     Indication: Product used for unknown indication
     Route: 065
  231. PANTOPRAZOLE SODIUM [Suspect]
     Active Substance: PANTOPRAZOLE SODIUM
     Indication: Product used for unknown indication
     Route: 065
  232. PANTOPRAZOLE SODIUM [Suspect]
     Active Substance: PANTOPRAZOLE SODIUM
     Indication: Product used for unknown indication
     Route: 065
  233. PANTOPRAZOLE SODIUM [Suspect]
     Active Substance: PANTOPRAZOLE SODIUM
     Indication: Product used for unknown indication
     Route: 065
  234. PANTOPRAZOLE SODIUM [Suspect]
     Active Substance: PANTOPRAZOLE SODIUM
     Indication: Product used for unknown indication
     Route: 048
  235. PANTOPRAZOLE SODIUM [Suspect]
     Active Substance: PANTOPRAZOLE SODIUM
     Indication: Product used for unknown indication
     Route: 065
  236. PANTOPRAZOLE SODIUM [Suspect]
     Active Substance: PANTOPRAZOLE SODIUM
     Indication: Product used for unknown indication
     Route: 065
  237. PANTOPRAZOLE SODIUM [Suspect]
     Active Substance: PANTOPRAZOLE SODIUM
     Indication: Product used for unknown indication
     Route: 065
  238. PANTOPRAZOLE SODIUM [Suspect]
     Active Substance: PANTOPRAZOLE SODIUM
     Indication: Product used for unknown indication
     Route: 065
  239. PANTOPRAZOLE SODIUM [Suspect]
     Active Substance: PANTOPRAZOLE SODIUM
     Indication: Product used for unknown indication
     Route: 065
  240. PANTOPRAZOLE SODIUM [Suspect]
     Active Substance: PANTOPRAZOLE SODIUM
     Indication: Product used for unknown indication
     Route: 065
  241. PANTOPRAZOLE SODIUM [Suspect]
     Active Substance: PANTOPRAZOLE SODIUM
     Indication: Product used for unknown indication
     Route: 065
  242. PANTOPRAZOLE SODIUM [Suspect]
     Active Substance: PANTOPRAZOLE SODIUM
     Indication: Product used for unknown indication
     Route: 065
  243. PANTOPRAZOLE SODIUM [Suspect]
     Active Substance: PANTOPRAZOLE SODIUM
     Indication: Product used for unknown indication
     Route: 065
  244. PANTOPRAZOLE SODIUM [Suspect]
     Active Substance: PANTOPRAZOLE SODIUM
     Indication: Product used for unknown indication
     Route: 065
  245. PANTOPRAZOLE SODIUM [Suspect]
     Active Substance: PANTOPRAZOLE SODIUM
     Indication: Product used for unknown indication
     Route: 065
  246. MYRBETRIQ [Suspect]
     Active Substance: MIRABEGRON
     Indication: Migraine
     Route: 065
  247. MYRBETRIQ [Suspect]
     Active Substance: MIRABEGRON
     Indication: Migraine
     Route: 048
  248. MYRBETRIQ [Suspect]
     Active Substance: MIRABEGRON
     Indication: Migraine
     Route: 048
  249. MYRBETRIQ [Suspect]
     Active Substance: MIRABEGRON
     Indication: Migraine
     Route: 065
  250. TRIAMCINOLONE ACETONIDE [Suspect]
     Active Substance: TRIAMCINOLONE ACETONIDE
     Indication: Product used for unknown indication
     Route: 014
  251. SULFASALAZINE [Suspect]
     Active Substance: SULFASALAZINE
     Indication: Rheumatoid arthritis
     Route: 048
  252. SULFASALAZINE [Suspect]
     Active Substance: SULFASALAZINE
     Indication: Rheumatoid arthritis
     Route: 048
  253. SULFASALAZINE [Suspect]
     Active Substance: SULFASALAZINE
     Indication: Rheumatoid arthritis
     Route: 048
  254. SULFASALAZINE [Suspect]
     Active Substance: SULFASALAZINE
     Indication: Rheumatoid arthritis
     Route: 048
  255. SULFASALAZINE [Suspect]
     Active Substance: SULFASALAZINE
     Indication: Rheumatoid arthritis
     Route: 048
  256. SULFASALAZINE [Suspect]
     Active Substance: SULFASALAZINE
     Indication: Rheumatoid arthritis
     Route: 048
  257. SULFASALAZINE [Suspect]
     Active Substance: SULFASALAZINE
     Indication: Rheumatoid arthritis
     Dosage: DOSE FORM: NOT SPECIFIED
     Route: 065
  258. FLUMETHASONE PIVALATE [Suspect]
     Active Substance: FLUMETHASONE PIVALATE
     Indication: Product used for unknown indication
     Route: 065
  259. RANITIDINE HYDROCHLORIDE [Suspect]
     Active Substance: RANITIDINE HYDROCHLORIDE
     Indication: Product used for unknown indication
     Route: 065
  260. METHOTREXATE [Suspect]
     Active Substance: METHOTREXATE
     Indication: Product used for unknown indication
     Route: 065
  261. MILNACIPRAN HYDROCHLORIDE [Suspect]
     Active Substance: MILNACIPRAN HYDROCHLORIDE
     Indication: Product used for unknown indication
     Route: 065
  262. MILNACIPRAN HYDROCHLORIDE [Suspect]
     Active Substance: MILNACIPRAN HYDROCHLORIDE
     Indication: Product used for unknown indication
     Route: 065
  263. DOMPERIDONE\PANTOPRAZOLE SODIUM [Suspect]
     Active Substance: DOMPERIDONE\PANTOPRAZOLE SODIUM
     Indication: Product used for unknown indication
     Route: 065
  264. DOMPERIDONE\PANTOPRAZOLE SODIUM [Suspect]
     Active Substance: DOMPERIDONE\PANTOPRAZOLE SODIUM
     Indication: Product used for unknown indication
     Route: 065
  265. VITAMIN D3 [Suspect]
     Active Substance: CHOLECALCIFEROL
     Indication: Product used for unknown indication
     Route: 065
  266. VITAMIN D3 [Suspect]
     Active Substance: CHOLECALCIFEROL
     Indication: Product used for unknown indication
     Route: 065
  267. RAMIPRIL [Suspect]
     Active Substance: RAMIPRIL
     Indication: Product used for unknown indication
     Route: 065
  268. ERELZI [Suspect]
     Active Substance: ETANERCEPT-SZZS
     Indication: Product used for unknown indication
     Route: 065
  269. VITAMIN B12 [Suspect]
     Active Substance: CYANOCOBALAMIN
     Indication: Product used for unknown indication
     Route: 048
  270. VITAMIN B12 [Suspect]
     Active Substance: CYANOCOBALAMIN
     Indication: Product used for unknown indication
     Route: 065
  271. VITAMIN B12 [Suspect]
     Active Substance: CYANOCOBALAMIN
     Indication: Product used for unknown indication
     Route: 065
  272. PREDNICARBATE [Suspect]
     Active Substance: PREDNICARBATE
     Indication: Product used for unknown indication
     Route: 065
  273. CANDESARTAN [Suspect]
     Active Substance: CANDESARTAN
     Indication: Migraine
     Route: 048
  274. CANDESARTAN [Suspect]
     Active Substance: CANDESARTAN
     Indication: Migraine
     Route: 048
  275. CANDESARTAN [Suspect]
     Active Substance: CANDESARTAN
     Indication: Migraine
     Route: 065
  276. FOLIC ACID [Suspect]
     Active Substance: FOLIC ACID
     Indication: Product used for unknown indication
     Route: 065
  277. THIAMINE [Suspect]
     Active Substance: THIAMINE
     Indication: Product used for unknown indication
     Route: 065
  278. THIAMINE [Suspect]
     Active Substance: THIAMINE
     Indication: Product used for unknown indication
     Route: 065
  279. MAGNESIUM CARBONATE [Suspect]
     Active Substance: MAGNESIUM CARBONATE
     Indication: Product used for unknown indication
     Route: 065
  280. MAGNESIUM CARBONATE [Suspect]
     Active Substance: MAGNESIUM CARBONATE
     Indication: Product used for unknown indication
     Dosage: MAGNESIUM CHLORIDE SOLUTION
     Route: 065
  281. MAGNESIUM CARBONATE [Suspect]
     Active Substance: MAGNESIUM CARBONATE
     Indication: Product used for unknown indication
     Route: 065
  282. TRAZODONE [Suspect]
     Active Substance: TRAZODONE HYDROCHLORIDE
     Indication: Product used for unknown indication
     Route: 065
  283. TRAZODONE [Suspect]
     Active Substance: TRAZODONE HYDROCHLORIDE
     Indication: Product used for unknown indication
     Route: 065
  284. TRAZODONE [Suspect]
     Active Substance: TRAZODONE HYDROCHLORIDE
     Indication: Product used for unknown indication
     Route: 065
  285. TRAZODONE [Suspect]
     Active Substance: TRAZODONE HYDROCHLORIDE
     Indication: Product used for unknown indication
     Route: 065
  286. TRAZODONE [Suspect]
     Active Substance: TRAZODONE HYDROCHLORIDE
     Indication: Product used for unknown indication
     Dosage: TRAZODONE HYDROCHLORIDE
     Route: 065
  287. TRAZODONE [Suspect]
     Active Substance: TRAZODONE HYDROCHLORIDE
     Indication: Product used for unknown indication
     Route: 065
  288. TRAZODONE [Suspect]
     Active Substance: TRAZODONE HYDROCHLORIDE
     Indication: Product used for unknown indication
     Route: 065
  289. TRAZODONE [Suspect]
     Active Substance: TRAZODONE HYDROCHLORIDE
     Indication: Product used for unknown indication
     Route: 065
  290. TRAZODONE [Suspect]
     Active Substance: TRAZODONE HYDROCHLORIDE
     Indication: Product used for unknown indication
     Route: 065

REACTIONS (27)
  - Paraesthesia [Fatal]
  - Migraine [Fatal]
  - Blepharospasm [Fatal]
  - Rash [Fatal]
  - Red blood cell sedimentation rate increased [Fatal]
  - Pain [Fatal]
  - Rheumatoid factor positive [Fatal]
  - Vomiting [Fatal]
  - Drug intolerance [Fatal]
  - Rheumatic fever [Fatal]
  - Sleep disorder [Fatal]
  - Stomatitis [Fatal]
  - Gastrooesophageal reflux disease [Fatal]
  - Drug ineffective [Fatal]
  - Rheumatoid arthritis [Fatal]
  - Epilepsy [Fatal]
  - Memory impairment [Fatal]
  - Off label use [Fatal]
  - Product use in unapproved indication [Fatal]
  - Synovitis [Fatal]
  - Abdominal pain upper [Fatal]
  - Swollen joint count increased [Fatal]
  - Hypoaesthesia [Fatal]
  - Taste disorder [Fatal]
  - Respiratory disorder [Fatal]
  - Sleep disorder due to a general medical condition [Fatal]
  - Swelling [Fatal]
